FAERS Safety Report 12073560 (Version 2)
Quarter: 2016Q1

REPORT INFORMATION
  Report Type: Spontaneous
  Country: CN (occurrence: CN)
  Receive Date: 20160212
  Receipt Date: 20160323
  Transmission Date: 20160526
  Serious: Yes (Hospitalization, Other)
  Sender: FDA-Public Use
  Company Number: CN-JNJFOC-20160206747

PATIENT

DRUGS (2)
  1. RISPERIDONE. [Suspect]
     Active Substance: RISPERIDONE
     Indication: SCHIZOPHRENIA
     Dosage: EXPERIMENTAL GROUP: MEAN DOSE WAS (3.06?0.95) MG/D. CONTROL GROUP: MEAN DOSE WAS (3.12?0.78) MG/D
     Route: 065
  2. CLOZAPINE. [Suspect]
     Active Substance: CLOZAPINE
     Indication: SCHIZOPHRENIA
     Dosage: EXPERIMENTAL GROUP: MEAN DOSE OF (225?93) MG/D, CONTROL GROUP:MEAN DOSE OF (238?89) MG/D.
     Route: 065

REACTIONS (2)
  - Hospitalisation [Unknown]
  - Schizophrenia [Unknown]
